FAERS Safety Report 21689691 (Version 1)
Quarter: 2022Q4

REPORT INFORMATION
  Report Type: Spontaneous
  Country: US (occurrence: US)
  Receive Date: 20221206
  Receipt Date: 20221206
  Transmission Date: 20230113
  Serious: Yes (Death)
  Sender: FDA-Public Use
  Company Number: US-BAYER-2022P025311

PATIENT
  Age: 67 Year
  Sex: Male

DRUGS (1)
  1. BAYER LOW DOSE [Suspect]
     Active Substance: ASPIRIN
     Indication: End stage renal disease
     Dosage: 81 MG, QD

REACTIONS (2)
  - Death [Fatal]
  - Contraindicated product administered [None]
